FAERS Safety Report 9437708 (Version 2)
Quarter: 2014Q1

REPORT INFORMATION
  Report Type: Spontaneous
  Country: US (occurrence: US)
  Receive Date: 20130802
  Receipt Date: 20140312
  Transmission Date: 20141002
  Serious: Yes (Hospitalization, Other)
  Sender: FDA-Public Use
  Company Number: US-009507513-1307USA017102

PATIENT
  Sex: Female
  Weight: 72.56 kg

DRUGS (2)
  1. NUVARING [Suspect]
     Indication: CONTRACEPTION
     Dosage: UNK
     Route: 067
     Dates: start: 200701, end: 200806
  2. NUVARING [Suspect]
     Indication: MENOMETRORRHAGIA

REACTIONS (11)
  - Cerebrovascular accident [Unknown]
  - Coagulopathy [Unknown]
  - Iron deficiency anaemia [Unknown]
  - Migraine [Not Recovered/Not Resolved]
  - Alopecia [Unknown]
  - Plastic surgery [Unknown]
  - Female sterilisation [Unknown]
  - Gastrooesophageal reflux disease [Not Recovered/Not Resolved]
  - Uterine leiomyoma [Unknown]
  - Off label use [Unknown]
  - Antithrombin III deficiency [Unknown]
